FAERS Safety Report 4976783-9 (Version None)
Quarter: 2006Q2

REPORT INFORMATION
  Report Type: 
  Country: None (occurrence: None)
  Receive Date: 20060419
  Receipt Date: 20060315
  Transmission Date: 20061013
  Serious: Yes (Other)
  Sender: FDA-Public Use
  Company Number: DE-GLAXOSMITHKLINE-D0049040A

PATIENT
  Age: 68 Year
  Sex: Male
  Weight: 80 kg

DRUGS (1)
  1. VIANI FORTE DISKUS [Suspect]
     Indication: ASTHMA
     Route: 065
     Dates: start: 20030101

REACTIONS (2)
  - INTESTINAL POLYP [None]
  - NEOPLASM [None]
